FAERS Safety Report 9095956 (Version 1)
Quarter: 2013Q1

REPORT INFORMATION
  Report Type: Spontaneous
  Country: US (occurrence: US)
  Receive Date: 20130204
  Receipt Date: 20130204
  Transmission Date: 20140127
  Serious: No
  Sender: FDA-Public Use
  Company Number: US-009507513-1301USA007092

PATIENT
  Age: 54 Year
  Sex: Female

DRUGS (3)
  1. VICTRELIS [Suspect]
     Indication: HEPATITIS C
     Dosage: 800 MG, TID
     Route: 048
     Dates: start: 20121214
  2. PEGASYS [Suspect]
  3. RIBASPHERE [Suspect]

REACTIONS (5)
  - Sinusitis [Unknown]
  - Sinus congestion [Unknown]
  - Cough [Unknown]
  - Anxiety [Unknown]
  - Feeling jittery [Unknown]
